FAERS Safety Report 5327593-4 (Version None)
Quarter: 2007Q2

REPORT INFORMATION
  Report Type: 
  Country: None (occurrence: None)
  Receive Date: 20070517
  Receipt Date: 20070122
  Transmission Date: 20071010
  Serious: Yes (Other)
  Sender: FDA-Public Use
  Company Number: US-JNJFOC-20070103700

PATIENT
  Age: 13 Month
  Sex: Male
  Weight: 10.89 kg

DRUGS (1)
  1. TRAMADOL HCL [Suspect]
     Indication: ACCIDENTAL DRUG INTAKE BY CHILD
     Route: 065

REACTIONS (2)
  - ACCIDENTAL DRUG INTAKE BY CHILD [None]
  - IRRITABILITY [None]
